FAERS Safety Report 5083339-9 (Version None)
Quarter: 2006Q3

REPORT INFORMATION
  Report Type: 
  Country: None (occurrence: None)
  Receive Date: 20060818
  Receipt Date: 20060809
  Transmission Date: 20061208
  Serious: Yes (Death)
  Sender: FDA-Public Use
  Company Number: FR-AVENTIS-200612789FR

PATIENT
  Age: 92 Year
  Sex: Male

DRUGS (6)
  1. LASILIX [Suspect]
     Indication: ESSENTIAL HYPERTENSION
     Route: 048
     Dates: start: 20060428, end: 20060502
  2. CORDARONE [Suspect]
     Indication: DRUG USE FOR UNKNOWN INDICATION
     Route: 048
  3. DEPAKENE [Suspect]
     Indication: DRUG USE FOR UNKNOWN INDICATION
  4. DIFFU K [Suspect]
     Indication: DRUG USE FOR UNKNOWN INDICATION
     Route: 048
  5. STILNOX [Suspect]
     Indication: DRUG USE FOR UNKNOWN INDICATION
     Route: 048
  6. DOLIPRANE [Concomitant]

REACTIONS (6)
  - COMA [None]
  - DEHYDRATION [None]
  - DIABETES MELLITUS [None]
  - DISEASE PROGRESSION [None]
  - HYPERNATRAEMIA [None]
  - INFECTION [None]
